FAERS Safety Report 8463173-X (Version None)
Quarter: 2012Q2

REPORT INFORMATION
  Report Type: 
  Country: None (occurrence: None)
  Receive Date: 20120625
  Receipt Date: 20120620
  Transmission Date: 20120825
  Serious: No
  Sender: FDA-Public Use
  Company Number: US-PFIZER INC-2012149222

PATIENT
  Sex: Female
  Weight: 87.528 kg

DRUGS (8)
  1. CRESTOR [Concomitant]
     Dosage: 20 MG, 1X/DAY
  2. LYRICA [Suspect]
     Dosage: 50 MG, 3X/DAY
     Dates: start: 20120101
  3. VITAMIN D [Concomitant]
     Dosage: 2000 IU, 1X/DAY
  4. LYRICA [Suspect]
     Indication: BURNING SENSATION
     Dosage: 25 MG, 3X/DAY
     Dates: start: 20120101
  5. SYNTHROID [Concomitant]
     Dosage: 75 UG, 1X/DAY
  6. KLOR-CON [Concomitant]
     Dosage: 24 MEQ, 1X/DAY
     Route: 048
  7. LASIX [Concomitant]
     Indication: BURNING SENSATION
     Dosage: UNK
     Dates: start: 20110101
  8. LISINOPRIL [Concomitant]
     Indication: HYPERTENSION
     Dosage: UNK, DAILY

REACTIONS (3)
  - OEDEMA PERIPHERAL [None]
  - WEIGHT INCREASED [None]
  - DRUG INEFFECTIVE [None]
